FAERS Safety Report 16213242 (Version 2)
Quarter: 2019Q2

REPORT INFORMATION
  Report Type: Spontaneous
  Country: US (occurrence: US)
  Receive Date: 20190418
  Receipt Date: 20190520
  Transmission Date: 20190711
  Serious: Yes (Life-Threatening, Hospitalization, Other)
  Sender: FDA-Public Use
  Company Number: US-AMGEN-USASP2019058446

PATIENT
  Age: 63 Year
  Sex: Female
  Weight: 72.11 kg

DRUGS (6)
  1. BACLOFEN. [Concomitant]
     Active Substance: BACLOFEN
     Indication: BONE PAIN
     Dosage: UNK
  2. MUCINEX [Concomitant]
     Active Substance: GUAIFENESIN
     Dosage: UNK
  3. ATIVAN [Concomitant]
     Active Substance: LORAZEPAM
     Dosage: UNK
  4. REPATHA [Suspect]
     Active Substance: EVOLOCUMAB
     Indication: BLOOD CHOLESTEROL INCREASED
     Dosage: 420 MILLIGRAM, QMO
     Route: 065
     Dates: start: 20180823, end: 20181205
  5. REPATHA [Suspect]
     Active Substance: EVOLOCUMAB
     Dosage: 140 MILLIGRAM, Q2WK
     Route: 065
  6. FLEXERIL [Concomitant]
     Active Substance: CYCLOBENZAPRINE HYDROCHLORIDE
     Indication: BONE PAIN

REACTIONS (17)
  - Pneumonia bacterial [Recovering/Resolving]
  - Muscular weakness [Recovering/Resolving]
  - Weight decreased [Recovering/Resolving]
  - Fall [Recovering/Resolving]
  - Asthenia [Recovering/Resolving]
  - Injection site erythema [Recovering/Resolving]
  - Laboratory test abnormal [Recovering/Resolving]
  - Myalgia [Recovering/Resolving]
  - Dizziness [Recovering/Resolving]
  - Rectal haemorrhage [Recovered/Resolved]
  - Sepsis [Recovering/Resolving]
  - Pain in extremity [Recovering/Resolving]
  - Injection site pain [Recovering/Resolving]
  - Muscle strain [Recovering/Resolving]
  - Incontinence [Recovering/Resolving]
  - Irritable bowel syndrome [Recovering/Resolving]
  - Gastroenteritis [Recovering/Resolving]

NARRATIVE: CASE EVENT DATE: 20190117
